FAERS Safety Report 25180008 (Version 1)
Quarter: 2025Q2

REPORT INFORMATION
  Report Type: Spontaneous
  Country: CA (occurrence: CA)
  Receive Date: 20250409
  Receipt Date: 20250409
  Transmission Date: 20250716
  Serious: Yes (Disabling)
  Sender: PFIZER
  Company Number: CA-PFIZER INC-202500072838

PATIENT
  Age: 7 Year
  Sex: Male
  Weight: 23 kg

DRUGS (42)
  1. BORTEZOMIB [Suspect]
     Active Substance: BORTEZOMIB
     Indication: Bone marrow transplant rejection
     Route: 042
  2. BORTEZOMIB [Suspect]
     Active Substance: BORTEZOMIB
     Indication: Anti-HLA antibody test positive
  3. ACYCLOVIR [Concomitant]
     Active Substance: ACYCLOVIR
  4. ALEMTUZUMAB [Concomitant]
     Active Substance: ALEMTUZUMAB
  5. AMPHOTERICIN B [Concomitant]
     Active Substance: AMPHOTERICIN B
  6. CETIRIZINE [Concomitant]
     Active Substance: CETIRIZINE HYDROCHLORIDE
  7. CIPROFLOXACIN [Concomitant]
     Active Substance: CIPROFLOXACIN
  8. DANAZOL [Concomitant]
     Active Substance: DANAZOL
  9. CYCLOPHOSPHAMIDE [Concomitant]
     Active Substance: CYCLOPHOSPHAMIDE
  10. DARATUMUMAB [Concomitant]
     Active Substance: DARATUMUMAB
     Route: 042
  11. DIPHENHYDRAMINE [Concomitant]
     Active Substance: DIPHENHYDRAMINE
  12. FAMOTIDINE [Concomitant]
     Active Substance: FAMOTIDINE
  13. FILGRASTIM [Concomitant]
     Active Substance: FILGRASTIM
  14. FLUDARABINE [Concomitant]
     Active Substance: FLUDARABINE PHOSPHATE
  15. FUROSEMIDE [Concomitant]
     Active Substance: FUROSEMIDE
     Route: 065
  16. GANCICLOVIR [Concomitant]
     Active Substance: GANCICLOVIR
  17. HYDROCORTISONE [Concomitant]
     Active Substance: HYDROCORTISONE
  18. HYDROXYZINE [Concomitant]
     Active Substance: HYDROXYZINE HYDROCHLORIDE
  19. LANSOPRAZOLE [Concomitant]
     Active Substance: LANSOPRAZOLE
  20. LEVOFLOXACIN [Concomitant]
     Active Substance: LEVOFLOXACIN
  21. LORATADINE [Concomitant]
     Active Substance: LORATADINE
  22. LORAZEPAM [Concomitant]
     Active Substance: LORAZEPAM
  23. MAGNESIUM [Concomitant]
     Active Substance: MAGNESIUM
  24. MEROPENEM [Concomitant]
     Active Substance: MEROPENEM
  25. METOCLOPRAMIDE [Concomitant]
     Active Substance: METOCLOPRAMIDE
  26. MICAFUNGIN [MICAFUNGIN SODIUM] [Concomitant]
  27. MONTELUKAST [Concomitant]
     Active Substance: MONTELUKAST
  28. OLANZAPINE [Concomitant]
     Active Substance: OLANZAPINE
  29. ONDANSETRON [Concomitant]
     Active Substance: ONDANSETRON
  30. PENTAM [Concomitant]
     Active Substance: PENTAMIDINE ISETHIONATE
  31. PIPERACILLIN SODIUM\TAZOBACTAM SODIUM [Concomitant]
     Active Substance: PIPERACILLIN SODIUM\TAZOBACTAM SODIUM
  32. POLYETHYLENE GLYCOL 3350 [Concomitant]
     Active Substance: POLYETHYLENE GLYCOL 3350
  33. POSACONAZOLE [Concomitant]
     Active Substance: POSACONAZOLE
  34. SULFAMETHOXAZOLE\TRIMETHOPRIM [Concomitant]
     Active Substance: SULFAMETHOXAZOLE\TRIMETHOPRIM
  35. TACROLIMUS [Concomitant]
     Active Substance: TACROLIMUS
  36. THYMOGLOBULIN [Concomitant]
     Active Substance: LAPINE T-LYMPHOCYTE IMMUNE GLOBULIN
  37. TOBRAMYCIN [Concomitant]
     Active Substance: TOBRAMYCIN
  38. AMINO ACIDS\DEXTROSE\ELECTROLYTES NOS\SOYBEAN OIL [Concomitant]
     Active Substance: AMINO ACIDS\DEXTROSE\ELECTROLYTES NOS\SOYBEAN OIL
  39. TRANEXAMIC ACID [Concomitant]
     Active Substance: TRANEXAMIC ACID
  40. URSODIOL [Concomitant]
     Active Substance: URSODIOL
  41. VALACYCLOVIR HYDROCHLORIDE [Concomitant]
     Active Substance: VALACYCLOVIR HYDROCHLORIDE
  42. VANCOMYCIN [Concomitant]
     Active Substance: VANCOMYCIN

REACTIONS (8)
  - Balance disorder [Unknown]
  - Gait disturbance [Unknown]
  - Neuropathy peripheral [Unknown]
  - Pain in extremity [Unknown]
  - Papule [Unknown]
  - Vasculitis [Unknown]
  - Walking aid user [Unknown]
  - Off label use [Unknown]
